FAERS Safety Report 5396854-5 (Version None)
Quarter: 2007Q3

REPORT INFORMATION
  Report Type: 
  Country: None (occurrence: None)
  Receive Date: 20070725
  Receipt Date: 20070723
  Transmission Date: 20080115
  Serious: Yes (Hospitalization, Disabling)
  Sender: FDA-Public Use
  Company Number: JP-BRISTOL-MYERS SQUIBB COMPANY-13807912

PATIENT
  Age: 65 Year
  Sex: Male

DRUGS (5)
  1. TAXOL [Suspect]
     Indication: NASAL SINUS CANCER
     Route: 041
     Dates: start: 20060322, end: 20060322
  2. CISPLATIN [Suspect]
     Indication: NASAL SINUS CANCER
  3. RADIATION THERAPY [Suspect]
     Indication: NASAL SINUS CANCER
  4. FLUOROURACIL [Suspect]
     Indication: NASAL SINUS CANCER
     Dates: start: 20051011, end: 20051209
  5. TAXOTERE [Suspect]
     Indication: NASAL SINUS CANCER
     Route: 041

REACTIONS (1)
  - RECALL PHENOMENON [None]
